FAERS Safety Report 7703429-9 (Version None)
Quarter: 2011Q3

REPORT INFORMATION
  Report Type: 
  Country: None (occurrence: None)
  Receive Date: 20110823
  Receipt Date: 20110823
  Transmission Date: 20111222
  Serious: No
  Sender: FDA-Public Use
  Company Number: None

PATIENT
  Age: 76 Year
  Sex: Female
  Weight: 77.11 kg

DRUGS (1)
  1. ERGOCALCIFEROL [Suspect]
     Indication: VITAMIN D DEFICIENCY
     Dosage: ONE CAPSULE
     Route: 048
     Dates: start: 20110331, end: 20110805

REACTIONS (2)
  - ABDOMINAL PAIN [None]
  - DIZZINESS [None]
